FAERS Safety Report 6925586-4 (Version None)
Quarter: 2010Q3

REPORT INFORMATION
  Report Type: 
  Country: None (occurrence: None)
  Receive Date: 20100816
  Receipt Date: 20100812
  Transmission Date: 20110219
  Serious: Yes (Hospitalization, Disabling, Other)
  Sender: FDA-Public Use
  Company Number: US-MERCK-0709USA03392

PATIENT
  Age: 63 Year
  Sex: Male

DRUGS (7)
  1. FOSAMAX [Suspect]
     Indication: OSTEOPOROSIS
     Route: 048
     Dates: start: 20000501, end: 20060101
  2. FOSAMAX [Suspect]
     Route: 048
  3. BONIVA [Suspect]
     Indication: OSTEOPOROSIS
     Route: 065
     Dates: start: 20060101, end: 20060101
  4. PRILOSEC [Concomitant]
     Indication: GASTROOESOPHAGEAL REFLUX DISEASE
     Route: 048
  5. ZIAC [Concomitant]
     Route: 065
  6. NAPROSYN [Concomitant]
     Route: 065
  7. VITAMINS (UNSPECIFIED) [Concomitant]
     Route: 065

REACTIONS (46)
  - ABSCESS [None]
  - ANAEMIA [None]
  - ANAEMIA MACROCYTIC [None]
  - ANAEMIA OF CHRONIC DISEASE [None]
  - ASTHENIA [None]
  - BACK PAIN [None]
  - CELLULITIS [None]
  - COMPRESSION FRACTURE [None]
  - DENTAL CARIES [None]
  - DENTAL FISTULA [None]
  - DIARRHOEA [None]
  - DRUG ABUSE [None]
  - FEMUR FRACTURE [None]
  - FISTULA [None]
  - GINGIVAL DISORDER [None]
  - GINGIVITIS [None]
  - GLOSSITIS [None]
  - GLOSSODYNIA [None]
  - HYPERKALAEMIA [None]
  - HYPOAESTHESIA [None]
  - IMPAIRED HEALING [None]
  - INSOMNIA [None]
  - INTENTIONAL OVERDOSE [None]
  - JAW FRACTURE [None]
  - LEFT VENTRICULAR HYPERTROPHY [None]
  - MAJOR DEPRESSION [None]
  - MITRAL VALVE CALCIFICATION [None]
  - MITRAL VALVE INCOMPETENCE [None]
  - NEUROPATHY PERIPHERAL [None]
  - ORAL CAVITY FISTULA [None]
  - ORAL DISORDER [None]
  - ORAL INFECTION [None]
  - OSTEOMYELITIS [None]
  - OSTEONECROSIS OF JAW [None]
  - PERIODONTAL DISEASE [None]
  - POLYNEUROPATHY [None]
  - POSTOPERATIVE WOUND INFECTION [None]
  - RENAL IMPAIRMENT [None]
  - SENSORY LOSS [None]
  - SUICIDE ATTEMPT [None]
  - TINEA PEDIS [None]
  - TOOTH DISORDER [None]
  - TOOTH FRACTURE [None]
  - TOOTH INFECTION [None]
  - TOOTHACHE [None]
  - WEIGHT DECREASED [None]
